FAERS Safety Report 21841420 (Version 1)
Quarter: 2023Q1

REPORT INFORMATION
  Report Type: Spontaneous
  Country: US (occurrence: None)
  Receive Date: 20230107
  Receipt Date: 20230107
  Transmission Date: 20230418
  Serious: Yes (Hospitalization)
  Sender: FDA-Public Use
  Company Number: None

PATIENT
  Age: 21 Year
  Sex: Male
  Weight: 200.58 kg

DRUGS (6)
  1. CALASPARGASE PEGOL-MKNL [Suspect]
     Active Substance: CALASPARGASE PEGOL-MKNL
     Dates: end: 20221129
  2. CYTARABINE [Suspect]
     Active Substance: CYTARABINE
     Dates: end: 20221205
  3. DAUNORUBICIN [Suspect]
     Active Substance: DAUNORUBICIN
     Dates: end: 20221208
  4. METHOTREXATE [Suspect]
     Active Substance: METHOTREXATE
     Dates: end: 20221201
  5. PREDNISOLONE [Suspect]
     Active Substance: PREDNISOLONE
     Dates: end: 20221212
  6. VINCRISTINE SULFATE [Suspect]
     Active Substance: VINCRISTINE SULFATE
     Dates: end: 20221208

REACTIONS (9)
  - Neutropenic sepsis [None]
  - Weight increased [None]
  - Hepatic enzyme increased [None]
  - Fluid retention [None]
  - Abdominal pain [None]
  - Gallbladder enlargement [None]
  - Cytopenia [None]
  - Venoocclusive liver disease [None]
  - Dyspnoea [None]

NARRATIVE: CASE EVENT DATE: 20221212
